FAERS Safety Report 8266218-5 (Version None)
Quarter: 2012Q2

REPORT INFORMATION
  Report Type: 
  Country: None (occurrence: None)
  Receive Date: 20120406
  Receipt Date: 20120327
  Transmission Date: 20120825
  Serious: Yes (Other)
  Sender: FDA-Public Use
  Company Number: CA-ROCHE-1044787

PATIENT
  Sex: Female
  Weight: 49.94 kg

DRUGS (7)
  1. ARAVA [Concomitant]
  2. SYNTHROID [Concomitant]
  3. NAPROSYN [Concomitant]
  4. NEXIUM [Concomitant]
  5. ACTEMRA [Suspect]
     Indication: RHEUMATOID ARTHRITIS
     Route: 042
     Dates: start: 20111118, end: 20120206
  6. PREDNISONE TAB [Concomitant]
  7. ZOPICLONE [Concomitant]

REACTIONS (1)
  - INTRAOCULAR PRESSURE INCREASED [None]
